FAERS Safety Report 5193756-4 (Version None)
Quarter: 2006Q4

REPORT INFORMATION
  Report Type: 
  Country: None (occurrence: None)
  Receive Date: 20061228
  Receipt Date: 20061012
  Transmission Date: 20070319
  Serious: Yes (Hospitalization)
  Sender: FDA-Public Use
  Company Number: FR-GLAXOSMITHKLINE-B0442787A

PATIENT
  Age: 79 Year
  Sex: Female

DRUGS (2)
  1. ARIXTRA [Suspect]
     Dosage: 2.5MG SINGLE DOSE
     Route: 058
     Dates: start: 20060902
  2. LOVENOX [Suspect]
     Indication: PROPHYLAXIS
     Route: 065
     Dates: start: 20060827, end: 20060902

REACTIONS (4)
  - HEPARIN-INDUCED THROMBOCYTOPENIA [None]
  - LOSS OF CONSCIOUSNESS [None]
  - PULMONARY EMBOLISM [None]
  - RESPIRATORY ARREST [None]
